FAERS Safety Report 22040461 (Version 3)
Quarter: 2023Q1

REPORT INFORMATION
  Report Type: Report from Study
  Country: US (occurrence: US)
  Receive Date: 20230227
  Receipt Date: 20230306
  Transmission Date: 20230417
  Serious: Yes (Hospitalization, Other)
  Sender: FDA-Public Use
  Company Number: US-GILEAD-2023-0618079

PATIENT
  Sex: Male

DRUGS (5)
  1. AMBRISENTAN [Suspect]
     Active Substance: AMBRISENTAN
     Indication: Pulmonary arterial hypertension
     Dosage: 10 MG, QD
     Route: 065
     Dates: start: 20190215
  2. TREPROSTINIL [Concomitant]
     Active Substance: TREPROSTINIL
  3. TADALAFIL [Concomitant]
     Active Substance: TADALAFIL
  4. ELIQUIS [Concomitant]
     Active Substance: APIXABAN
  5. ADCIRCA [Concomitant]
     Active Substance: TADALAFIL

REACTIONS (4)
  - Mental status changes [Not Recovered/Not Resolved]
  - Lethargy [Not Recovered/Not Resolved]
  - Device related infection [Not Recovered/Not Resolved]
  - Infection [Unknown]
